FAERS Safety Report 4836050-0 (Version None)
Quarter: 2005Q4

REPORT INFORMATION
  Report Type: 
  Country: None (occurrence: None)
  Receive Date: 20051123
  Receipt Date: 20051003
  Transmission Date: 20060501
  Serious: Yes (Hospitalization, Disabling)
  Sender: FDA-Public Use
  Company Number: US-MERCK-0510USA01989

PATIENT
  Age: 45 Year
  Sex: Male
  Weight: 91 kg

DRUGS (3)
  1. VIOXX [Suspect]
     Indication: ARTHRITIS
     Route: 048
     Dates: start: 19990101, end: 20010101
  2. TYLENOL [Concomitant]
     Route: 065
  3. PERCOCET [Concomitant]
     Route: 065

REACTIONS (3)
  - BRAIN STEM INFARCTION [None]
  - HEADACHE [None]
  - OSTEOARTHRITIS [None]
